FAERS Safety Report 17450081 (Version 1)
Quarter: 2020Q1

REPORT INFORMATION
  Report Type: Spontaneous
  Country: US (occurrence: US)
  Receive Date: 20200221
  Receipt Date: 20200221
  Transmission Date: 20200409
  Serious: Yes (Other)
  Sender: FDA-Public Use
  Company Number: None

PATIENT
  Age: 49 Year
  Sex: Female
  Weight: 51.75 kg

DRUGS (12)
  1. MAGNESIUM [Concomitant]
     Active Substance: MAGNESIUM
  2. TYLENOL [Concomitant]
     Active Substance: ACETAMINOPHEN
  3. LORAZEPAM. [Concomitant]
     Active Substance: LORAZEPAM
  4. BENADRYL [Concomitant]
     Active Substance: DIPHENHYDRAMINE HYDROCHLORIDE
  5. ZINC. [Concomitant]
     Active Substance: ZINC
  6. COPPER [Concomitant]
     Active Substance: COPPER
  7. OXYCODONE [Concomitant]
     Active Substance: OXYCODONE
  8. CALCIUM [Concomitant]
     Active Substance: CALCIUM
  9. VIT A, D, C [Concomitant]
  10. BIOFREEZE [Suspect]
     Active Substance: MENTHOL
     Indication: ANALGESIC THERAPY
     Dosage: ?          OTHER FREQUENCY:AT PHYS THER SESSI;?
     Route: 061
     Dates: start: 20200218, end: 20200218
  11. LINZESS [Concomitant]
     Active Substance: LINACLOTIDE
  12. LAMOTRAGINE [Concomitant]
     Active Substance: LAMOTRIGINE

REACTIONS (4)
  - Application site pain [None]
  - Drug hypersensitivity [None]
  - Application site vesicles [None]
  - Application site burn [None]

NARRATIVE: CASE EVENT DATE: 20200218
